FAERS Safety Report 8229023-1 (Version None)
Quarter: 2012Q1

REPORT INFORMATION
  Report Type: 
  Country: None (occurrence: None)
  Receive Date: 20120322
  Receipt Date: 20120315
  Transmission Date: 20120608
  Serious: Yes (Other)
  Sender: FDA-Public Use
  Company Number: GB-PFIZER INC-2012049451

PATIENT
  Age: 75 Year
  Sex: Male

DRUGS (10)
  1. FORMOTEROL FUMARATE [Suspect]
     Dosage: UNK
     Route: 055
  2. METFORMIN HCL [Suspect]
     Dosage: UNK
  3. ATORVASTATIN [Suspect]
     Dosage: UNK
  4. VERAPAMIL [Suspect]
     Dosage: UNK
  5. CYSTEINE [Suspect]
     Dosage: UNK
  6. WARFARIN [Suspect]
     Dosage: UNK
  7. ALBUTEROL [Suspect]
     Dosage: UNK
  8. FUROSEMIDE [Suspect]
     Dosage: UNK
  9. PREDNISOLONE [Suspect]
     Dosage: UNK
  10. RAMIPRIL [Suspect]
     Dosage: UNK

REACTIONS (1)
  - HALLUCINATION [None]
